FAERS Safety Report 26153702 (Version 1)
Quarter: 2025Q4

REPORT INFORMATION
  Report Type: Spontaneous
  Country: US (occurrence: None)
  Receive Date: 20251214
  Receipt Date: 20251214
  Transmission Date: 20260118
  Serious: Yes (Other)
  Sender: APOTEX
  Company Number: US-APOTEX-2025AP033920

PATIENT
  Age: 25 Year
  Sex: Female

DRUGS (24)
  1. LEVETIRACETAM [Suspect]
     Active Substance: LEVETIRACETAM
     Indication: Idiopathic generalised epilepsy
     Dosage: 1750 MILLIGRAM, Q.AM
     Route: 065
  2. LEVETIRACETAM [Suspect]
     Active Substance: LEVETIRACETAM
     Dosage: 1750 MILLIGRAM, QD IN THE EVENING
     Route: 065
  3. LEVETIRACETAM [Suspect]
     Active Substance: LEVETIRACETAM
     Dosage: 2000 MILLIGRAM, Q.AM
     Route: 065
  4. LEVETIRACETAM [Suspect]
     Active Substance: LEVETIRACETAM
     Dosage: 2000 MILLIGRAM, QD IN THE EVENING
     Route: 065
  5. LEVETIRACETAM [Suspect]
     Active Substance: LEVETIRACETAM
     Dosage: 2500 MILLIGRAM, Q.AM
     Route: 065
  6. LEVETIRACETAM [Suspect]
     Active Substance: LEVETIRACETAM
     Dosage: 2500 MILLIGRAM, QD IN THE EVENING
     Route: 065
  7. LEVETIRACETAM [Suspect]
     Active Substance: LEVETIRACETAM
     Dosage: 2000 MILLIGRAM, Q.AM
     Route: 065
  8. LEVETIRACETAM [Suspect]
     Active Substance: LEVETIRACETAM
     Dosage: 2000 MILLIGRAM, QD IN THE EVENING
     Route: 065
  9. CLOBAZAM [Suspect]
     Active Substance: CLOBAZAM
     Indication: Idiopathic generalised epilepsy
     Dosage: 5 MILLIGRAM, Q.AM
     Route: 065
  10. CLOBAZAM [Suspect]
     Active Substance: CLOBAZAM
     Dosage: 10 MILLIGRAM, QD IN THE EVENING
     Route: 065
  11. LAMOTRIGINE [Suspect]
     Active Substance: LAMOTRIGINE
     Indication: Idiopathic generalised epilepsy
     Dosage: 250 MILLIGRAM, Q.AM
     Route: 065
  12. LAMOTRIGINE [Suspect]
     Active Substance: LAMOTRIGINE
     Dosage: 250 MILLIGRAM, QD IN THE EVENING
     Route: 065
  13. LAMOTRIGINE [Suspect]
     Active Substance: LAMOTRIGINE
     Dosage: 350 MILLIGRAM, Q.AM
     Route: 065
  14. LAMOTRIGINE [Suspect]
     Active Substance: LAMOTRIGINE
     Dosage: 350 MILLIGRAM, QD IN THE EVENING
     Route: 065
  15. ETHOSUXIMIDE [Suspect]
     Active Substance: ETHOSUXIMIDE
     Indication: Idiopathic generalised epilepsy
     Dosage: 500 MILLIGRAM, Q.AM
     Route: 065
  16. ETHOSUXIMIDE [Suspect]
     Active Substance: ETHOSUXIMIDE
     Dosage: 500 MILLIGRAM, QD IN THE EVENING
     Route: 065
  17. ETHOSUXIMIDE [Suspect]
     Active Substance: ETHOSUXIMIDE
     Dosage: 500 MILLIGRAM, Q.AM
     Route: 065
  18. ETHOSUXIMIDE [Suspect]
     Active Substance: ETHOSUXIMIDE
     Dosage: 750 MILLIGRAM, QD IN THE EVENING
     Route: 065
  19. ETHOSUXIMIDE [Suspect]
     Active Substance: ETHOSUXIMIDE
     Dosage: 500 MILLIGRAM, Q.AM
     Route: 065
  20. ETHOSUXIMIDE [Suspect]
     Active Substance: ETHOSUXIMIDE
     Dosage: 500 MILLIGRAM, QD IN THE EVENING
     Route: 065
  21. ETHOSUXIMIDE [Suspect]
     Active Substance: ETHOSUXIMIDE
     Dosage: 500 MILLIGRAM, Q.AM
     Route: 065
  22. ETHOSUXIMIDE [Suspect]
     Active Substance: ETHOSUXIMIDE
     Dosage: 750 MILLIGRAM, QD IN THE EVENING
     Route: 065
  23. FOLIC ACID [Concomitant]
     Active Substance: FOLIC ACID
     Indication: Product used for unknown indication
     Dosage: 4 MILLIGRAM, QD
     Route: 065
  24. FERROUS SULFATE [Concomitant]
     Active Substance: FERROUS SULFATE
     Indication: Product used for unknown indication
     Dosage: 60 MILLIGRAM
     Route: 065

REACTIONS (3)
  - Generalised tonic-clonic seizure [Unknown]
  - Drug ineffective [Unknown]
  - Maternal exposure during pregnancy [Unknown]
